FAERS Safety Report 10017388 (Version 1)
Quarter: 2014Q1

REPORT INFORMATION
  Report Type: Spontaneous
  Country: US (occurrence: None)
  Receive Date: 20140313
  Receipt Date: 20140313
  Transmission Date: 20141002
  Serious: Yes (Disabling)
  Sender: FDA-Public Use
  Company Number: None

PATIENT
  Age: 38 Year
  Sex: Female
  Weight: 77.11 kg

DRUGS (1)
  1. RELPAX [Suspect]
     Indication: MIGRAINE
     Dosage: 1 TO 2 PILLS AS NEEDED
     Dates: start: 20100301, end: 20140312

REACTIONS (11)
  - Contusion [None]
  - Peripheral vascular disorder [None]
  - Pain in extremity [None]
  - Muscle spasms [None]
  - Arthralgia [None]
  - Muscle spasms [None]
  - Muscle tightness [None]
  - Sensation of heaviness [None]
  - Hypoaesthesia [None]
  - Paraesthesia [None]
  - Muscular weakness [None]
